FAERS Safety Report 18501967 (Version 1)
Quarter: 2020Q4

REPORT INFORMATION
  Report Type: Spontaneous
  Country: GB (occurrence: GB)
  Receive Date: 20201113
  Receipt Date: 20201113
  Transmission Date: 20210114
  Serious: Yes (Hospitalization, Other)
  Sender: FDA-Public Use
  Company Number: GB-TEVA-2020-GB-1848775

PATIENT
  Age: 6 Decade
  Sex: Male

DRUGS (15)
  1. AZATHIOPRINE. [Suspect]
     Active Substance: AZATHIOPRINE
     Indication: IMMUNOSUPPRESSANT DRUG THERAPY
     Route: 065
  2. PREDNISOLONE. [Suspect]
     Active Substance: PREDNISOLONE
     Dosage: 8 MILLIGRAM DAILY;
     Route: 065
  3. PREDNISOLONE. [Suspect]
     Active Substance: PREDNISOLONE
     Dosage: 5 MILLIGRAM DAILY;
     Route: 065
  4. PREDNISOLONE. [Suspect]
     Active Substance: PREDNISOLONE
     Indication: IMMUNOSUPPRESSANT DRUG THERAPY
     Dosage: 15 MILLIGRAM DAILY;
     Route: 065
  5. METHYLPREDNISOLONE. [Suspect]
     Active Substance: METHYLPREDNISOLONE
     Indication: IMMUNOSUPPRESSANT DRUG THERAPY
     Route: 042
  6. LEFLUNOMIDE. [Concomitant]
     Active Substance: LEFLUNOMIDE
     Indication: CYTOMEGALOVIRUS VIRAEMIA
     Dosage: SYSTEMIC
     Route: 065
  7. CYTOTEC [Concomitant]
     Active Substance: MISOPROSTOL
     Indication: CYTOMEGALOVIRUS VIRAEMIA
     Route: 065
  8. GANCICLOVIR. [Suspect]
     Active Substance: GANCICLOVIR
     Indication: CYTOMEGALOVIRUS VIRAEMIA
     Route: 042
  9. CICLOSPORIN [Suspect]
     Active Substance: CYCLOSPORINE
     Indication: IMMUNOSUPPRESSANT DRUG THERAPY
     Route: 065
  10. ANTI-THYMOCYTE GLOBULIN (RABBIT) NOS [Suspect]
     Active Substance: LAPINE T-LYMPHOCYTE IMMUNE GLOBULIN
     Indication: IMMUNOSUPPRESSANT DRUG THERAPY
     Route: 065
  11. FOSCARNET [Suspect]
     Active Substance: FOSCARNET
     Indication: CYTOMEGALOVIRUS VIRAEMIA
     Route: 042
  12. FOSCARNET [Suspect]
     Active Substance: FOSCARNET
     Indication: CYTOMEGALOVIRUS CHORIORETINITIS
     Dosage: 2.4 MG/0.1 ML; IN THE RIGHT THEN THE LEFT EYE AND REPEATED AT 1-2-WEEK INTERVALS.
     Route: 050
  13. VALGANCICLOVIR. [Concomitant]
     Active Substance: VALGANCICLOVIR
     Indication: PROPHYLAXIS
     Route: 065
  14. TACROLIMUS. [Suspect]
     Active Substance: TACROLIMUS
     Indication: IMMUNOSUPPRESSANT DRUG THERAPY
     Dosage: 4 MILLIGRAM DAILY;
     Route: 048
  15. SIROLIMUS. [Concomitant]
     Active Substance: SIROLIMUS
     Indication: PRODUCT USED FOR UNKNOWN INDICATION
     Route: 065

REACTIONS (8)
  - Cytomegalovirus viraemia [Recovered/Resolved]
  - Cytomegalovirus chorioretinitis [Recovered/Resolved]
  - Pneumonia cytomegaloviral [Recovered/Resolved]
  - Nephropathy toxic [Recovering/Resolving]
  - Retinal detachment [Recovered/Resolved]
  - Visual impairment [Not Recovered/Not Resolved]
  - Retinal scar [Recovered/Resolved]
  - Drug resistance [Recovered/Resolved]
